FAERS Safety Report 8467372 (Version 3)
Quarter: 2013Q4

REPORT INFORMATION
  Report Type: Report from Study
  Country: US (occurrence: US)
  Receive Date: 20120320
  Receipt Date: 20131210
  Transmission Date: 20140711
  Serious: Yes (Death, Hospitalization, Other)
  Sender: FDA-Public Use
  Company Number: US-ELI_LILLY_AND_COMPANY-US201202007132

PATIENT
  Age: 58 Year
  Sex: Female

DRUGS (2)
  1. TERIPARATIDE [Suspect]
     Dosage: 20 UG, UNKNOWN
     Route: 065
  2. TERIPARATIDE [Suspect]
     Dosage: UNK, QD
     Route: 065

REACTIONS (5)
  - Death [Fatal]
  - Pancreatic carcinoma [Unknown]
  - Pulmonary thrombosis [Unknown]
  - Arthralgia [Unknown]
  - Nausea [Unknown]
